FAERS Safety Report 12282056 (Version 2)
Quarter: 2016Q2

REPORT INFORMATION
  Report Type: Spontaneous
  Country: US (occurrence: US)
  Receive Date: 20160419
  Receipt Date: 20160421
  Transmission Date: 20160815
  Serious: Yes (Hospitalization)
  Sender: FDA-Public Use
  Company Number: US-JNJFOC-20160412174

PATIENT
  Sex: Female

DRUGS (1)
  1. INVOKANA [Suspect]
     Active Substance: CANAGLIFLOZIN
     Indication: DIABETES MELLITUS
     Route: 048
     Dates: start: 201509

REACTIONS (9)
  - Peripheral swelling [Unknown]
  - Urinary tract infection [Unknown]
  - Eye infection [Unknown]
  - Hepatic infection [Unknown]
  - Sepsis [Unknown]
  - Wound [Unknown]
  - Lung infection [Unknown]
  - Eye disorder [Unknown]
  - Fracture [Unknown]
